FAERS Safety Report 12936412 (Version 1)
Quarter: 2016Q4

REPORT INFORMATION
  Report Type: Spontaneous
  Country: US (occurrence: US)
  Receive Date: 20161113
  Receipt Date: 20161113
  Transmission Date: 20170207
  Serious: Yes (Other)
  Sender: FDA-Public Use
  Company Number: None

PATIENT
  Age: 35 Year
  Sex: Female
  Weight: 71.1 kg

DRUGS (8)
  1. FENTANYL. [Suspect]
     Active Substance: FENTANYL
  2. ADVAIR HFA [Concomitant]
     Active Substance: FLUTICASONE PROPIONATE\SALMETEROL XINAFOATE
  3. CLARITIN [Concomitant]
     Active Substance: LORATADINE
  4. VERSED [Suspect]
     Active Substance: MIDAZOLAM HYDROCHLORIDE
     Indication: SEDATION
     Route: 042
     Dates: start: 20161109
  5. RELPAX [Concomitant]
     Active Substance: ELETRIPTAN HYDROBROMIDE
  6. CPAP [Concomitant]
     Active Substance: DEVICE
  7. TYLENOL [Concomitant]
     Active Substance: ACETAMINOPHEN
  8. ALBUTEROL. [Concomitant]
     Active Substance: ALBUTEROL

REACTIONS (10)
  - Screaming [None]
  - Dissociation [None]
  - Hallucination [None]
  - Panic reaction [None]
  - Crying [None]
  - Tremor [None]
  - Anxiety [None]
  - Myalgia [None]
  - Agitation [None]
  - Memory impairment [None]

NARRATIVE: CASE EVENT DATE: 20161109
